FAERS Safety Report 5574415-2 (Version None)
Quarter: 2007Q4

REPORT INFORMATION
  Report Type: 
  Country: None (occurrence: None)
  Receive Date: 20071227
  Receipt Date: 20071217
  Transmission Date: 20080405
  Serious: Yes (Life-Threatening, Hospitalization)
  Sender: FDA-Public Use
  Company Number: PL-WYE-H01726507

PATIENT
  Age: 15 Year
  Sex: Female
  Weight: 60 kg

DRUGS (3)
  1. PROPRANOLOL [Suspect]
     Dosage: 550 MG ONCE
     Route: 048
  2. ETHANOL [Suspect]
  3. VERAPAMIL [Interacting]
     Dosage: 960 MG ONCE

REACTIONS (6)
  - CARDIAC ARREST [None]
  - CARDIOGENIC SHOCK [None]
  - DRUG INTERACTION [None]
  - OVERDOSE [None]
  - SUICIDE ATTEMPT [None]
  - VENTRICULAR FIBRILLATION [None]
